FAERS Safety Report 12747550 (Version 4)
Quarter: 2018Q4

REPORT INFORMATION
  Report Type: Spontaneous
  Country: US (occurrence: US)
  Receive Date: 20160915
  Receipt Date: 20181213
  Transmission Date: 20190204
  Serious: Yes (Other)
  Sender: FDA-Public Use
  Company Number: US-ASTELLAS-2016US031945

PATIENT
  Age: 77 Year
  Sex: Male

DRUGS (4)
  1. XTANDI [Suspect]
     Active Substance: ENZALUTAMIDE
     Route: 048
  2. XTANDI [Suspect]
     Active Substance: ENZALUTAMIDE
     Indication: PROSTATE CANCER METASTATIC
     Route: 048
     Dates: start: 201601
  3. XTANDI [Suspect]
     Active Substance: ENZALUTAMIDE
     Route: 048
  4. XTANDI [Suspect]
     Active Substance: ENZALUTAMIDE
     Route: 048
     Dates: start: 201603

REACTIONS (18)
  - Hypotrichosis [Not Recovered/Not Resolved]
  - Arthralgia [Unknown]
  - Inappropriate schedule of product administration [Unknown]
  - Alopecia [Not Recovered/Not Resolved]
  - Pain [Unknown]
  - Overdose [Unknown]
  - Malignant neoplasm progression [Unknown]
  - Hypotonia [Not Recovered/Not Resolved]
  - Prostatic specific antigen increased [Unknown]
  - Peripheral coldness [Unknown]
  - Muscle atrophy [Not Recovered/Not Resolved]
  - Fatigue [Not Recovered/Not Resolved]
  - Poor peripheral circulation [Unknown]
  - Intentional dose omission [Unknown]
  - Feminisation acquired [Not Recovered/Not Resolved]
  - Fatigue [Unknown]
  - Night sweats [Unknown]
  - Back pain [Unknown]

NARRATIVE: CASE EVENT DATE: 201606
